FAERS Safety Report 9329424 (Version 1)
Quarter: 2013Q2

REPORT INFORMATION
  Report Type: Spontaneous
  Country: IT (occurrence: IT)
  Receive Date: 20130604
  Receipt Date: 20130604
  Transmission Date: 20140414
  Serious: Yes (Hospitalization)
  Sender: FDA-Public Use
  Company Number: IT-GLAXOSMITHKLINE-B0896756A

PATIENT
  Age: 78 Year
  Sex: Female

DRUGS (18)
  1. ARIXTRA [Suspect]
     Indication: PRODUCT USED FOR UNKNOWN INDICATION
     Route: 065
  2. CIPROXIN [Suspect]
     Indication: PRODUCT USED FOR UNKNOWN INDICATION
     Route: 042
  3. IMIPENEM AND CILASTATIN [Suspect]
     Indication: PNEUMONIA
     Dosage: 1500MG PER DAY
     Route: 042
     Dates: start: 20130125, end: 20130201
  4. TAZOCIN [Suspect]
     Indication: PNEUMONIA
     Dosage: 3UD PER DAY
     Route: 042
     Dates: start: 20130119, end: 20130125
  5. TARGOSID [Suspect]
     Indication: PNEUMONIA
     Dosage: 3UD PER DAY
     Route: 042
     Dates: start: 20130125, end: 20130201
  6. CONGESCOR [Concomitant]
  7. KARVEA [Concomitant]
  8. TRIATEC [Concomitant]
  9. LASIX [Concomitant]
  10. COUMADIN [Concomitant]
  11. NORVASC [Concomitant]
  12. LANTUS [Concomitant]
  13. MOTILIUM [Concomitant]
  14. SELEPARINA [Concomitant]
  15. NOVORAPID [Concomitant]
  16. CLENIL [Concomitant]
  17. OXIVENT [Concomitant]
  18. PANTOPAN [Concomitant]

REACTIONS (3)
  - Rash maculo-papular [Recovering/Resolving]
  - Purpura [Recovering/Resolving]
  - Eyelid oedema [Recovering/Resolving]
